FAERS Safety Report 5143260-4 (Version None)
Quarter: 2006Q4

REPORT INFORMATION
  Report Type: 
  Country: None (occurrence: None)
  Receive Date: 20061030
  Receipt Date: 20061019
  Transmission Date: 20070319
  Serious: Yes (Hospitalization, Disabling, Other)
  Sender: FDA-Public Use
  Company Number: 2006129661

PATIENT
  Age: 52 Year
  Sex: Female

DRUGS (4)
  1. LIPITOR [Suspect]
     Indication: BLOOD CHOLESTEROL
     Dosage: 10 MG
     Dates: start: 20020101, end: 20060601
  2. LIPITOR [Suspect]
     Indication: BLOOD TRIGLYCERIDES
     Dosage: 10 MG
     Dates: start: 20020101, end: 20060601
  3. METHOTREXATE [Concomitant]
  4. PAXIL [Concomitant]

REACTIONS (11)
  - ANGIOPATHY [None]
  - ARTHRALGIA [None]
  - BLINDNESS [None]
  - FIBROMYALGIA [None]
  - HEADACHE [None]
  - NUCLEAR MAGNETIC RESONANCE IMAGING ABNORMAL [None]
  - RETINAL VASCULITIS [None]
  - SUICIDE ATTEMPT [None]
  - TENDON PAIN [None]
  - VASCULITIS [None]
  - VISUAL DISTURBANCE [None]
